FAERS Safety Report 7409596-9 (Version None)
Quarter: 2011Q2

REPORT INFORMATION
  Report Type: 
  Country: None (occurrence: None)
  Receive Date: 20110407
  Receipt Date: 20110407
  Transmission Date: 20111010
  Serious: No
  Sender: FDA-Public Use
  Company Number: None

PATIENT
  Age: 73 Year
  Sex: Female

DRUGS (1)
  1. RITUXAN [Suspect]
     Indication: NON-HODGKIN'S LYMPHOMA
     Dosage: 800MG IV
     Route: 042
     Dates: start: 20101209, end: 20101210

REACTIONS (4)
  - CHILLS [None]
  - INFUSION RELATED REACTION [None]
  - CHEST DISCOMFORT [None]
  - DRUG HYPERSENSITIVITY [None]
